FAERS Safety Report 11722830 (Version 1)
Quarter: 2015Q4

REPORT INFORMATION
  Report Type: Spontaneous
  Country: US (occurrence: None)
  Receive Date: 20151110
  Receipt Date: 20151110
  Transmission Date: 20160304
  Serious: Yes (Hospitalization)
  Sender: FDA-Public Use
  Company Number: None

PATIENT
  Age: 71 Year
  Sex: Female
  Weight: 85.28 kg

DRUGS (6)
  1. TYLENOL [Concomitant]
     Active Substance: ACETAMINOPHEN
  2. KNEE BRACE [Concomitant]
  3. ONE A DAY VITAMINS [Concomitant]
  4. BACK BRACE [Concomitant]
  5. IC MEGESTROL ACE 40 MG/ML SUSP [Suspect]
     Active Substance: MEGESTROL ACETATE
     Indication: DECREASED APPETITE
     Route: 048
     Dates: start: 201306, end: 20140214
  6. CARVEDILOL. [Concomitant]
     Active Substance: CARVEDILOL

REACTIONS (6)
  - Pulmonary thrombosis [None]
  - Thrombosis [None]
  - Paraesthesia [None]
  - Peripheral coldness [None]
  - Hypoaesthesia [None]
  - Cardiovascular disorder [None]

NARRATIVE: CASE EVENT DATE: 201306
